FAERS Safety Report 11593510 (Version 1)
Quarter: 2015Q4

REPORT INFORMATION
  Report Type: Spontaneous
  Country: None (occurrence: None)
  Receive Date: 20151002
  Receipt Date: 20151002
  Transmission Date: 20160304
  Serious: Yes (Life-Threatening, Hospitalization)
  Sender: FDA-Public Use
  Company Number: None

PATIENT
  Age: 88 Year
  Sex: Female

DRUGS (1)
  1. XARELTO [Suspect]
     Active Substance: RIVAROXABAN
     Indication: ATRIAL FIBRILLATION

REACTIONS (6)
  - Nausea [None]
  - Asthenia [None]
  - Dizziness [None]
  - Tachycardia [None]
  - Decreased appetite [None]
  - Vomiting [None]

NARRATIVE: CASE EVENT DATE: 20151001
